FAERS Safety Report 14175964 (Version 2)
Quarter: 2018Q2

REPORT INFORMATION
  Report Type: Other
  Country: CA (occurrence: CA)
  Receive Date: 20171109
  Receipt Date: 20180423
  Transmission Date: 20180711
  Serious: Yes (Hospitalization, Other)
  Sender: FDA-Public Use
  Company Number: CA-INTERCEPT-PMOCA2017000653

PATIENT

DRUGS (2)
  1. OCALIVA [Suspect]
     Active Substance: OBETICHOLIC ACID
     Indication: CHOLANGITIS
     Dosage: 5 MG, QD
     Route: 048
     Dates: start: 20170720
  2. OCALIVA [Suspect]
     Active Substance: OBETICHOLIC ACID
     Dosage: 5 MG, QW
     Route: 048
     Dates: start: 20171023

REACTIONS (10)
  - Pyrexia [Unknown]
  - Insomnia [Unknown]
  - Generalised oedema [Unknown]
  - Pruritus [Recovered/Resolved]
  - Abdominal distension [Unknown]
  - Portal hypertension [Unknown]
  - Fatigue [Unknown]
  - Fluid overload [Unknown]
  - Peripheral swelling [Unknown]
  - Incorrect drug administration rate [None]

NARRATIVE: CASE EVENT DATE: 20170720
